FAERS Safety Report 7531515-5 (Version None)
Quarter: 2011Q2

REPORT INFORMATION
  Report Type: 
  Country: None (occurrence: None)
  Receive Date: 20110608
  Receipt Date: 20110525
  Transmission Date: 20111010
  Serious: Yes (Hospitalization, Other)
  Sender: FDA-Public Use
  Company Number: PHBS2000AU00510

PATIENT
  Sex: Female

DRUGS (5)
  1. CLOZARIL [Suspect]
     Dosage: 400 MG, UNK
     Dates: start: 19970106, end: 20000106
  2. WARFARIN SODIUM [Concomitant]
     Route: 065
  3. KEFLEX [Concomitant]
  4. CLOZARIL [Suspect]
     Route: 048
     Dates: start: 19970101, end: 20000108
  5. BRICANYL [Concomitant]
     Route: 048

REACTIONS (12)
  - MALAISE [None]
  - RENAL FAILURE ACUTE [None]
  - VOMITING [None]
  - HYPERTENSION [None]
  - NEUTROPHIL COUNT DECREASED [None]
  - WHITE BLOOD CELL COUNT DECREASED [None]
  - DYSPNOEA [None]
  - CARDIAC FAILURE CONGESTIVE [None]
  - CARDIOMYOPATHY [None]
  - INFLUENZA LIKE ILLNESS [None]
  - MYOCARDITIS [None]
  - TACHYCARDIA [None]
